FAERS Safety Report 18520491 (Version 1)
Quarter: 2020Q4

REPORT INFORMATION
  Report Type: Spontaneous
  Country: US (occurrence: US)
  Receive Date: 20201119
  Receipt Date: 20201119
  Transmission Date: 20210114
  Serious: No
  Sender: FDA-Public Use
  Company Number: US-AUROBINDO-AUR-APL-2020-036684

PATIENT
  Age: 94 Year
  Sex: Female
  Weight: 73.03 kg

DRUGS (2)
  1. PANTOPRAZOLE SODIUM DELAYED-RELEASE TABLETS USP 20MG [Suspect]
     Active Substance: PANTOPRAZOLE SODIUM
     Indication: GASTROOESOPHAGEAL REFLUX DISEASE
     Dosage: 1 DOSAGE FORM, EVERY MORNING, 15 MINUTES BEFORE BREAKFAST
     Route: 065
     Dates: start: 20200603, end: 20200615
  2. PANTOPRAZOLE SODIUM DELAYED-RELEASE TABLETS USP 20MG [Suspect]
     Active Substance: PANTOPRAZOLE SODIUM
     Dosage: UNK
     Route: 065

REACTIONS (13)
  - Nervousness [Unknown]
  - Insomnia [Recovered/Resolved]
  - Nausea [Unknown]
  - Diarrhoea [Not Recovered/Not Resolved]
  - Muscle spasms [Recovered/Resolved]
  - Dry mouth [Not Recovered/Not Resolved]
  - Product substitution issue [Unknown]
  - Feeling jittery [Recovering/Resolving]
  - Tremor [Recovering/Resolving]
  - Asthenia [Unknown]
  - Dehydration [Unknown]
  - Abdominal discomfort [Unknown]
  - Arthralgia [Unknown]

NARRATIVE: CASE EVENT DATE: 202007
